FAERS Safety Report 14411804 (Version 2)
Quarter: 2018Q2

REPORT INFORMATION
  Report Type: Spontaneous
  Country: US (occurrence: US)
  Receive Date: 20180119
  Receipt Date: 20180604
  Transmission Date: 20180711
  Serious: Yes (Death, Hospitalization)
  Sender: FDA-Public Use
  Company Number: US-PARI RESPIRATORY EQUIPMENT, INC.-2018PAR00004

PATIENT
  Age: 85 Year
  Sex: Female

DRUGS (5)
  1. TOBRAMYCIN. [Suspect]
     Active Substance: TOBRAMYCIN
     Indication: BRONCHIECTASIS
     Dosage: 300 MG, 2X/DAY; EVERY 12 HOURS
     Route: 055
     Dates: start: 20170203
  2. ALBUTEROL. [Concomitant]
     Active Substance: ALBUTEROL
  3. UNSPECIFIED ADV PROBIOTIC [Concomitant]
  4. TOBRAMYCIN. [Suspect]
     Active Substance: TOBRAMYCIN
     Indication: CYSTIC FIBROSIS
     Dosage: 300 MG, 2X/DAY; EVERY 12 HOURS
     Route: 055
     Dates: start: 20170204, end: 20180518
  5. PRILOSEC [Concomitant]
     Active Substance: OMEPRAZOLE MAGNESIUM

REACTIONS (2)
  - Bronchitis [Not Recovered/Not Resolved]
  - Death [Fatal]

NARRATIVE: CASE EVENT DATE: 20171128
